FAERS Safety Report 23897667 (Version 4)
Quarter: 2024Q3

REPORT INFORMATION
  Report Type: Spontaneous
  Country: JP (occurrence: JP)
  Receive Date: 20240524
  Receipt Date: 20240710
  Transmission Date: 20241017
  Serious: Yes (Death, Hospitalization, Other)
  Sender: GENMAB
  Company Number: JP-GENMAB-2024-01290AA

PATIENT
  Age: 91 Year
  Sex: Female
  Weight: 42.3 kg

DRUGS (12)
  1. EPKINLY [Suspect]
     Active Substance: EPCORITAMAB-BYSP
     Indication: Diffuse large B-cell lymphoma
     Dosage: 0.16 MILLIGRAM, SINGLE
     Route: 058
     Dates: start: 20240402, end: 20240402
  2. EPKINLY [Suspect]
     Active Substance: EPCORITAMAB-BYSP
     Dosage: 0.8 MILLIGRAM, SINGLE
     Route: 058
     Dates: start: 20240409, end: 20240409
  3. EPKINLY [Suspect]
     Active Substance: EPCORITAMAB-BYSP
     Dosage: 48 MILLIGRAM
     Route: 058
     Dates: start: 20240416, end: 20240423
  4. EPKINLY [Suspect]
     Active Substance: EPCORITAMAB-BYSP
     Dosage: 48 MILLIGRAM
     Route: 058
     Dates: start: 20240517, end: 20240517
  5. LINAGLIPTIN [Concomitant]
     Active Substance: LINAGLIPTIN
     Dosage: UNK, ADMINISTERED FOR MORE THAN FOUR OR FIVE YEARS
  6. METFORMIN HYDROCHLORIDE [Concomitant]
     Active Substance: METFORMIN HYDROCHLORIDE
     Dosage: UNK, ADMINISTERED FOR MORE THAN FOUR OR FIVE YEARS
  7. OLMESARTAN [Concomitant]
     Active Substance: OLMESARTAN
     Dosage: UNK, ADMINISTERED FOR MORE THAN FOUR OR FIVE YEARS
  8. AMLODIPINE [Concomitant]
     Active Substance: AMLODIPINE BESYLATE
     Dosage: UNK, ADMINISTERED FOR MORE THAN FOUR OR FIVE YEARS
  9. PREDONINE [Concomitant]
     Active Substance: PREDNISOLONE
     Indication: Prophylaxis
     Dosage: 100 MILLIGRAM, ON DAY 1, DAY 2, DAY 3 AND DAY 4 OF ADMINISTRATION OF EPKINLY, FROM THE FIRST TO THE
     Dates: start: 20240402, end: 20240420
  10. DIPHENHYDRAMINE [Concomitant]
     Active Substance: DIPHENHYDRAMINE
     Indication: Prophylaxis
     Dosage: 50 MILLIGRAM, ON DAY 1 OF ADMINISTRATION OF EPKINLY
     Dates: start: 20240402, end: 20240423
  11. CALONAL [Concomitant]
     Active Substance: ACETAMINOPHEN
     Indication: Prophylaxis
     Dosage: 1000 MILLIGRAM, ON DAY 1 OF ADMINISTRATION OF EPKINLY
     Dates: start: 20240402, end: 20240423
  12. DECADRON [Concomitant]
     Active Substance: DEXAMETHASONE
     Indication: Prophylaxis
     Dosage: 16 MILLIGRAM, AT THE FOURTH ADMINISTRATION OF EPKINLY
     Dates: start: 202404

REACTIONS (6)
  - Death [Fatal]
  - Diffuse large B-cell lymphoma [Fatal]
  - Immune effector cell-associated neurotoxicity syndrome [Recovered/Resolved]
  - Cytokine release syndrome [Recovered/Resolved]
  - Nausea [Recovering/Resolving]
  - Constipation [Recovering/Resolving]

NARRATIVE: CASE EVENT DATE: 20240401
